FAERS Safety Report 16613743 (Version 6)
Quarter: 2020Q4

REPORT INFORMATION
  Report Type: Other
  Country: DE (occurrence: DE)
  Receive Date: 20190723
  Receipt Date: 20201019
  Transmission Date: 20210113
  Serious: Yes (Other)
  Sender: FDA-Public Use
  Company Number: DE-ROCHE-2183928

PATIENT
  Age: 39 Year
  Sex: Female
  Weight: 62 kg

DRUGS (5)
  1. OCRELIZUMAB. [Suspect]
     Active Substance: OCRELIZUMAB
     Indication: RELAPSING-REMITTING MULTIPLE SCLEROSIS
     Route: 042
     Dates: start: 20180704, end: 20180718
  2. AZITHROMYCIN ANHYDROUS. [Concomitant]
     Active Substance: AZITHROMYCIN ANHYDROUS
  3. MIRENA [Concomitant]
     Active Substance: LEVONORGESTREL
     Indication: CONTRACEPTION
     Route: 050
  4. OCRELIZUMAB. [Suspect]
     Active Substance: OCRELIZUMAB
     Route: 042
     Dates: start: 20181219
  5. SATIVEX [Concomitant]
     Active Substance: NABIXIMOLS
     Dosage: DEFINITION OF THE INTERVAL: AS REQUIRED
     Route: 050
     Dates: start: 2019

REACTIONS (8)
  - Vision blurred [Recovered/Resolved]
  - Diarrhoea [Recovered/Resolved]
  - Alopecia [Unknown]
  - Fatigue [Recovered/Resolved]
  - Eczema [Unknown]
  - Nausea [Recovered/Resolved]
  - Urinary tract infection [Recovered/Resolved]
  - Nasopharyngitis [Recovered/Resolved]

NARRATIVE: CASE EVENT DATE: 20180718
